FAERS Safety Report 5633452-X (Version None)
Quarter: 2008Q1

REPORT INFORMATION
  Report Type: 
  Country: None (occurrence: None)
  Receive Date: 20080221
  Receipt Date: 20080211
  Transmission Date: 20080703
  Serious: Yes (Other)
  Sender: FDA-Public Use
  Company Number: DE-ELI_LILLY_AND_COMPANY-DE200801002478

PATIENT
  Sex: Female
  Weight: 70 kg

DRUGS (7)
  1. CYMBALTA [Suspect]
     Dosage: 180 MG (3X60MG), UNKNOWN
     Route: 048
  2. ALCOHOL [Concomitant]
     Dosage: UNK, UNKNOWN
     Route: 048
  3. IBUPROFEN TABLETS [Concomitant]
     Dosage: 5-10 TABLETS OF 600
     Route: 048
  4. OPIPRAMOL [Concomitant]
     Dosage: 6 D/F, UNKNOWN
     Route: 048
  5. SEROQUEL [Concomitant]
     Dosage: 1400 MG, 7 TABLETS OF 200MG
     Route: 048
  6. TEGRETOL [Concomitant]
     Dosage: 2800 MG (7 TABLETS OF 400MG)
     Route: 048
  7. ZOPICLON [Concomitant]
     Dosage: 52.5 MG (7 ABLETS OF 7.5MG)
     Route: 048

REACTIONS (4)
  - ELECTROCARDIOGRAM QT PROLONGED [None]
  - INTENTIONAL OVERDOSE [None]
  - SOMNOLENCE [None]
  - SUICIDE ATTEMPT [None]
